FAERS Safety Report 14431709 (Version 1)
Quarter: 2018Q1

REPORT INFORMATION
  Report Type: Spontaneous
  Country: FR (occurrence: FR)
  Receive Date: 20180124
  Receipt Date: 20180124
  Transmission Date: 20180509
  Serious: Yes (Other)
  Sender: FDA-Public Use
  Company Number: FR-LPDUSPRD-20180044

PATIENT
  Age: 36 Year
  Sex: Female
  Weight: 57 kg

DRUGS (1)
  1. FERINJECT [Suspect]
     Active Substance: FERRIC CARBOXYMALTOSE
     Dosage: 1 GM, 1 TOTAL
     Route: 041
     Dates: start: 20170417

REACTIONS (4)
  - Product use in unapproved indication [Unknown]
  - Dyspnoea [Unknown]
  - Rash [Unknown]
  - Palatal oedema [Unknown]

NARRATIVE: CASE EVENT DATE: 20170417
